FAERS Safety Report 5919675-0 (Version None)
Quarter: 2008Q3

REPORT INFORMATION
  Report Type: 
  Country: None (occurrence: None)
  Receive Date: 20080909
  Receipt Date: 20080624
  Transmission Date: 20090109
  Serious: Yes (Disabling)
  Sender: FDA-Public Use
  Company Number: 163-20785-08060007

PATIENT
  Age: 73 Year
  Sex: Female

DRUGS (13)
  1. THALOMID [Suspect]
     Indication: MULTIPLE MYELOMA
     Dosage: 50 MG, 1 IN 1 D, ORAL ; 100 MG 1 IN 1 D, ORAL
     Route: 048
     Dates: start: 20080115, end: 20080523
  2. THALOMID [Suspect]
     Indication: MULTIPLE MYELOMA
     Dosage: 50 MG, 1 IN 1 D, ORAL ; 100 MG 1 IN 1 D, ORAL
     Route: 048
     Dates: start: 20080530
  3. VELCADE [Suspect]
     Indication: DRUG USE FOR UNKNOWN INDICATION
  4. LISINOPRIL [Concomitant]
  5. LORAZEPAM [Concomitant]
  6. LUNESTA [Concomitant]
  7. FOSAMAX [Concomitant]
  8. OSCAL (CALCIUM CARBONATE) [Concomitant]
  9. ADVAIR DISKUS 100/50 [Concomitant]
  10. MIRALAX [Concomitant]
  11. ALTOPREV (LOVASTATIN) [Concomitant]
  12. COUMADIN [Concomitant]
  13. ACYCLOVIR [Concomitant]

REACTIONS (1)
  - NEUROPATHY PERIPHERAL [None]
